FAERS Safety Report 9322983 (Version 2)
Quarter: 2014Q1

REPORT INFORMATION
  Report Type: Spontaneous
  Country: US (occurrence: US)
  Receive Date: 20130603
  Receipt Date: 20140206
  Transmission Date: 20141002
  Serious: Yes (Hospitalization)
  Sender: FDA-Public Use
  Company Number: US-B.I. PHARMACEUTICALS,INC./RIDGEFIELD-2013-BI-14721BP

PATIENT
  Sex: Male
  Weight: 81.65 kg

DRUGS (8)
  1. PRADAXA [Suspect]
     Indication: ATRIAL FIBRILLATION
     Dosage: 300 MG
     Route: 048
     Dates: start: 20120222, end: 20120229
  2. ASPIRIN [Concomitant]
     Dosage: 81 MG
     Route: 048
  3. FISH OIL [Concomitant]
     Dosage: 1000 MG
     Route: 048
  4. KLONOPIN [Concomitant]
     Route: 048
  5. LEVOTHYROXINE [Concomitant]
     Indication: HYPOTHYROIDISM
     Dosage: 50 MCG
     Route: 048
  6. PROTONIX [Concomitant]
     Dosage: 40 MG
     Route: 048
  7. PRAVASTATIN [Concomitant]
     Dosage: 20 MG
     Route: 048
  8. PRINIVIL [Concomitant]
     Dosage: 10 MG
     Route: 048

REACTIONS (1)
  - Gastrointestinal haemorrhage [Unknown]
